FAERS Safety Report 13628547 (Version 2)
Quarter: 2017Q3

REPORT INFORMATION
  Report Type: Spontaneous
  Country: FR (occurrence: FR)
  Receive Date: 20170608
  Receipt Date: 20170814
  Transmission Date: 20171127
  Serious: Yes (Other)
  Sender: FDA-Public Use
  Company Number: FR-PFIZER INC-2017248589

PATIENT
  Age: 28 Year
  Sex: Female

DRUGS (5)
  1. AMIKACIN MYLAN [Suspect]
     Active Substance: AMIKACIN
     Indication: TUBERCULOSIS
     Dosage: 900 MG, 1X/DAY
     Route: 042
     Dates: start: 20170323
  2. ZYVOXID [Suspect]
     Active Substance: LINEZOLID
     Indication: TUBERCULOSIS
     Dosage: 600 MG, 1X/DAY
     Route: 048
     Dates: start: 20170316
  3. CYCLOSERINE. [Suspect]
     Active Substance: CYCLOSERINE
     Indication: TUBERCULOSIS
     Dosage: 500 MG, 1X/DAY
     Route: 048
     Dates: start: 20170316
  4. LAMPRENE [Suspect]
     Active Substance: CLOFAZIMINE
     Indication: TUBERCULOSIS
     Dosage: 200 MG, 1X/DAY
     Route: 048
     Dates: start: 20170316
  5. SIRTURO [Suspect]
     Active Substance: BEDAQUILINE FUMARATE
     Indication: TUBERCULOSIS
     Dosage: 200 MG, 3X/WEEK
     Route: 048
     Dates: start: 20170316

REACTIONS (2)
  - Chills [Not Recovered/Not Resolved]
  - Tremor [Recovered/Resolved]

NARRATIVE: CASE EVENT DATE: 201705
